FAERS Safety Report 4513618-2 (Version None)
Quarter: 2004Q4

REPORT INFORMATION
  Report Type: 
  Country: None (occurrence: None)
  Receive Date: 20041124
  Receipt Date: 20041108
  Transmission Date: 20050328
  Serious: Yes (Hospitalization)
  Sender: FDA-Public Use
  Company Number: J200404479

PATIENT
  Age: 79 Year
  Sex: Female

DRUGS (5)
  1. MYSLEE ZOLPIDEM TABLET 10MG [Suspect]
     Indication: INSOMNIA
     Dosage: 10MG, PO
     Route: 048
     Dates: start: 20041026, end: 20041026
  2. PA NON-PYRINE PREPARATION FOR COLD SYNDROME 4 TABLET [Suspect]
     Indication: UPPER RESPIRATORY TRACT INFLAMMATION
     Dosage: 3 TABLETS PO
     Route: 048
     Dates: start: 20041026, end: 20041026
  3. FAMOTIDINE [Concomitant]
  4. ALFAROL (ALFACALCIDOL) [Concomitant]
  5. MOBIC [Concomitant]

REACTIONS (5)
  - CEREBRAL INFARCTION [None]
  - DELIRIUM [None]
  - LOSS OF CONSCIOUSNESS [None]
  - TONGUE PARALYSIS [None]
  - TREMOR [None]
